FAERS Safety Report 10663588 (Version 4)
Quarter: 2015Q1

REPORT INFORMATION
  Report Type: Report from Study
  Country: IT (occurrence: IT)
  Receive Date: 20141219
  Receipt Date: 20150331
  Transmission Date: 20150720
  Serious: Yes (Other)
  Sender: FDA-Public Use
  Company Number: IT-ROCHE-CID000000003453185

PATIENT
  Age: 70 Year
  Sex: Male
  Weight: 61 kg

DRUGS (5)
  1. LANSOPRAZOLO [Concomitant]
     Active Substance: LANSOPRAZOLE
     Route: 065
     Dates: start: 20130214
  2. VEMURAFENIB [Suspect]
     Active Substance: VEMURAFENIB
     Indication: METASTATIC MALIGNANT MELANOMA
     Dosage: LAST DOSE PRIOR TO SAE: 28/APR/2014
     Route: 048
     Dates: start: 20140317
  3. VEMURAFENIB [Suspect]
     Active Substance: VEMURAFENIB
     Dosage: LAST DOSE PRIOR TO SAE: 14/JUL/2012
     Route: 048
     Dates: start: 20120416
  4. MEDROL [Concomitant]
     Active Substance: METHYLPREDNISOLONE
     Route: 065
     Dates: start: 20140428
  5. SIMVASTATINA [Concomitant]
     Active Substance: SIMVASTATIN
     Route: 065
     Dates: start: 20130516

REACTIONS (1)
  - Neuroendocrine carcinoma [Recovered/Resolved]

NARRATIVE: CASE EVENT DATE: 20140428
